FAERS Safety Report 4815147-5 (Version None)
Quarter: 2005Q4

REPORT INFORMATION
  Report Type: 
  Country: None (occurrence: None)
  Receive Date: 20051027
  Receipt Date: 20051015
  Transmission Date: 20060501
  Serious: Yes (Other)
  Sender: FDA-Public Use
  Company Number: 2005142114

PATIENT
  Sex: Female
  Weight: 20.4119 kg

DRUGS (2)
  1. BENADRYL [Suspect]
     Indication: SEASONAL ALLERGY
     Dosage: 1/2 TABLET IN AM, 1 TABLET IN PM, ORAL
     Route: 048
     Dates: start: 20040101
  2. AZELASTINE HYDROCHLORIDE (AZELASTINE HYDROCHLORIDE) [Concomitant]

REACTIONS (2)
  - HALLUCINATION [None]
  - INSOMNIA [None]
